FAERS Safety Report 8451279-0 (Version None)
Quarter: 2012Q2

REPORT INFORMATION
  Report Type: 
  Country: None (occurrence: None)
  Receive Date: 20120620
  Receipt Date: 20120223
  Transmission Date: 20120825
  Serious: No
  Sender: FDA-Public Use
  Company Number: US-VERTEX PHARMACEUTICALS INC.-AE-2012-002239

PATIENT
  Sex: Male
  Weight: 81.72 kg

DRUGS (3)
  1. PEGASYS [Concomitant]
     Indication: HEPATITIS C
     Route: 058
     Dates: start: 20111224
  2. RIBAVIRIN [Concomitant]
     Indication: HEPATITIS C
     Route: 048
     Dates: start: 20111224
  3. INCIVEK [Suspect]
     Indication: HEPATITIS C
     Route: 048
     Dates: start: 20111224, end: 20120223

REACTIONS (7)
  - OEDEMA PERIPHERAL [None]
  - FATIGUE [None]
  - SYNCOPE [None]
  - SKIN WRINKLING [None]
  - ANAEMIA [None]
  - MUSCLE SPASMS [None]
  - URTICARIA [None]
